FAERS Safety Report 5023818-3 (Version None)
Quarter: 2006Q2

REPORT INFORMATION
  Report Type: 
  Country: None (occurrence: None)
  Receive Date: 20060606
  Receipt Date: 20060518
  Transmission Date: 20061013
  Serious: Yes (Other)
  Sender: FDA-Public Use
  Company Number: 110605ISR

PATIENT
  Age: 67 Year
  Sex: Female

DRUGS (3)
  1. FLUOROURACIL [Suspect]
     Indication: BREAST CANCER
     Dates: start: 20041130
  2. EPIRUBICIN [Suspect]
     Indication: BREAST CANCER
     Dates: start: 20041130
  3. CYCLOPHOSPHAMIDE [Suspect]
     Indication: BREAST CANCER
     Dates: start: 20041130

REACTIONS (2)
  - CONGESTIVE CARDIOMYOPATHY [None]
  - ILL-DEFINED DISORDER [None]
